FAERS Safety Report 6822392-6 (Version None)
Quarter: 2010Q3

REPORT INFORMATION
  Report Type: 
  Country: None (occurrence: None)
  Receive Date: 20100708
  Receipt Date: 20100628
  Transmission Date: 20110219
  Serious: Yes (Hospitalization)
  Sender: FDA-Public Use
  Company Number: PHHY2010IT19495

PATIENT
  Sex: Female

DRUGS (1)
  1. TAREG [Suspect]
     Indication: HYPERTENSION
     Dosage: 80 MG (1 POSOLOGIC UNIT)
     Route: 048
     Dates: start: 20100312, end: 20100312

REACTIONS (2)
  - SUFFOCATION FEELING [None]
  - THROAT TIGHTNESS [None]
